FAERS Safety Report 18611736 (Version 1)
Quarter: 2020Q4

REPORT INFORMATION
  Report Type: Spontaneous
  Country: US (occurrence: US)
  Receive Date: 20201214
  Receipt Date: 20201214
  Transmission Date: 20210114
  Serious: No
  Sender: FDA-Public Use
  Company Number: US-ASTRAZENECA-2020SF66158

PATIENT
  Age: 7 Year
  Sex: Male

DRUGS (4)
  1. SEROQUEL [Suspect]
     Active Substance: QUETIAPINE FUMARATE
     Indication: ILL-DEFINED DISORDER
     Dosage: TOOK 21 TABLETS OR 14 DAYS WORTH OF MEDICATION.
     Route: 048
     Dates: start: 20201018
  2. VYVANSE [Concomitant]
     Active Substance: LISDEXAMFETAMINE DIMESYLATE
  3. GUANFACINE. [Concomitant]
     Active Substance: GUANFACINE
  4. CLONODINE [Concomitant]
     Active Substance: CLONIDINE

REACTIONS (4)
  - Anger [Unknown]
  - Emotional disorder [Unknown]
  - Anxiety [Unknown]
  - Product use issue [Unknown]
